FAERS Safety Report 26007988 (Version 1)
Quarter: 2025Q4

REPORT INFORMATION
  Report Type: Spontaneous
  Country: US (occurrence: US)
  Receive Date: 20251106
  Receipt Date: 20251106
  Transmission Date: 20260119
  Serious: No
  Sender: PFIZER
  Company Number: US-PFIZER INC-202500200963

PATIENT
  Age: 77 Year
  Sex: Female

DRUGS (2)
  1. XELJANZ XR [Suspect]
     Active Substance: TOFACITINIB CITRATE
     Dosage: 11 MG, DAILY
     Route: 048
  2. CYCLOSPORINE [Suspect]
     Active Substance: CYCLOSPORINE
     Dosage: OPHTHALMIC EMULSION
     Route: 047

REACTIONS (1)
  - Pain [Not Recovered/Not Resolved]
